FAERS Safety Report 13923821 (Version 9)
Quarter: 2019Q1

REPORT INFORMATION
  Report Type: Spontaneous
  Country: US (occurrence: US)
  Receive Date: 20170831
  Receipt Date: 20190226
  Transmission Date: 20190417
  Serious: Yes (Hospitalization)
  Sender: FDA-Public Use
  Company Number: US-PFIZER INC-2017374238

PATIENT
  Age: 74 Year
  Sex: Male

DRUGS (2)
  1. REVATIO [Suspect]
     Active Substance: SILDENAFIL CITRATE
     Dosage: 40 MG, 3X/DAY (2 THREE TIMES A DAY)
  2. REVATIO [Suspect]
     Active Substance: SILDENAFIL CITRATE
     Indication: LUNG DISORDER
     Dosage: 20 MG, 2X/DAY
     Dates: start: 2010

REACTIONS (11)
  - Depressed mood [Unknown]
  - Insomnia [Unknown]
  - Dyspnoea [Unknown]
  - Tremor [Not Recovered/Not Resolved]
  - Memory impairment [Not Recovered/Not Resolved]
  - Night sweats [Recovered/Resolved]
  - Dysuria [Unknown]
  - Prescribed overdose [Unknown]
  - Feeling abnormal [Unknown]
  - Confusional state [Recovered/Resolved]
  - Hyperventilation [Unknown]
